FAERS Safety Report 12207953 (Version 1)
Quarter: 2016Q1

REPORT INFORMATION
  Report Type: Spontaneous
  Country: BG (occurrence: BG)
  Receive Date: 20160324
  Receipt Date: 20160324
  Transmission Date: 20160526
  Serious: Yes (Life-Threatening, Hospitalization, Other)
  Sender: FDA-Public Use
  Company Number: BG-ASTRAZENECA-2016SE30208

PATIENT
  Age: 21397 Day
  Sex: Female
  Weight: 78 kg

DRUGS (6)
  1. BISOPROLOL [Concomitant]
     Active Substance: BISOPROLOL
     Indication: HYPERTENSION
     Dosage: 2DF 5 UNKNOWN
  2. FORXIGA [Suspect]
     Active Substance: DAPAGLIFLOZIN
     Indication: TYPE 2 DIABETES MELLITUS
     Route: 048
     Dates: start: 20160307
  3. NOVOMIX [Concomitant]
     Active Substance: INSULIN ASPART
     Dosage: 30 30-30-20 U
     Route: 065
     Dates: end: 20160307
  4. THIOGAMMA [Concomitant]
     Active Substance: THIOCTIC ACID
  5. METFORMIN [Concomitant]
     Active Substance: METFORMIN HYDROCHLORIDE
     Dosage: 1000 MG THREE TIMES A DAY FOR 4 DAYS NON AZ PRODUCT
     Route: 065
  6. RAMIPRIL. [Concomitant]
     Active Substance: RAMIPRIL
     Indication: HYPERTENSION

REACTIONS (5)
  - Cerebral haemorrhage [Unknown]
  - Ischaemic stroke [Unknown]
  - Brain oedema [Unknown]
  - Diabetic neuropathy [Unknown]
  - Diabetic ketoacidosis [Recovered/Resolved]

NARRATIVE: CASE EVENT DATE: 20160311
